APPROVED DRUG PRODUCT: XOFLUZA
Active Ingredient: BALOXAVIR MARBOXIL
Strength: 20MG **Federal Register determination that product was not discontinued or withdrawn for safety or effectiveness reasons**
Dosage Form/Route: TABLET;ORAL
Application: N210854 | Product #001
Applicant: GENENTECH INC
Approved: Oct 24, 2018 | RLD: Yes | RS: No | Type: DISCN

PATENTS:
Patent 11306106 | Expires: Aug 9, 2037
Patent 11306106 | Expires: Aug 9, 2037
Patent 10633397 | Expires: Apr 27, 2036
Patent 10633397 | Expires: Apr 27, 2036
Patent 8927710 | Expires: May 5, 2031
Patent 8987441 | Expires: Oct 24, 2032
Patent 10759814 | Expires: Aug 9, 2037
Patent 11261198 | Expires: Sep 25, 2038
Patent 12064438 | Expires: Oct 9, 2039
Patent 10392406 | Expires: Apr 27, 2036
Patent 9815835 | Expires: Jun 14, 2030

EXCLUSIVITY:
Code: M-187 | Date: Dec 19, 2027